FAERS Safety Report 9467765 (Version 1)
Quarter: 2013Q3

REPORT INFORMATION
  Report Type: Spontaneous
  Country: US (occurrence: None)
  Receive Date: 20130819
  Receipt Date: 20130819
  Transmission Date: 20140515
  Serious: Yes (Other)
  Sender: FDA-Public Use
  Company Number: None

PATIENT
  Age: 70 Year
  Sex: Female
  Weight: 59.88 kg

DRUGS (1)
  1. COMBIVENT RESPIMAT [Suspect]
     Indication: CHRONIC OBSTRUCTIVE PULMONARY DISEASE
     Dosage: INHALE NEEDED DOSE?FOUR TIMES DAILY?INHALATION?

REACTIONS (3)
  - Dyspnoea [None]
  - Pneumonia [None]
  - Condition aggravated [None]
